FAERS Safety Report 12902078 (Version 1)
Quarter: 2016Q4

REPORT INFORMATION
  Report Type: Spontaneous
  Country: IT (occurrence: IT)
  Receive Date: 20161102
  Receipt Date: 20161102
  Transmission Date: 20170207
  Serious: Yes (Hospitalization)
  Sender: FDA-Public Use
  Company Number: IT-SUN PHARMACEUTICAL INDUSTRIES LTD-2016RR-126785

PATIENT
  Age: 38 Year
  Sex: Female

DRUGS (8)
  1. SEROQUEL [Suspect]
     Active Substance: QUETIAPINE FUMARATE
     Indication: DRUG ABUSE
     Dosage: TOTAL
     Route: 048
  2. LORAZEPAM. [Suspect]
     Active Substance: LORAZEPAM
     Indication: DRUG ABUSE
     Dosage: TOTAL
     Route: 048
  3. FLURAZEPAM [Suspect]
     Active Substance: FLURAZEPAM\FLURAZEPAM HYDROCHLORIDE
     Indication: DRUG ABUSE
     Dosage: 600 MG TOTAL
     Route: 048
  4. VALPROIC ACID. [Suspect]
     Active Substance: VALPROIC ACID
     Indication: DRUG ABUSE
     Dosage: TOTAL
     Route: 048
  5. LITHIUM. [Suspect]
     Active Substance: LITHIUM
     Indication: DRUG ABUSE
     Dosage: TOTAL
     Route: 048
  6. TALOFEN 4 G/100 ML [Suspect]
     Active Substance: PROMAZINE HYDROCHLORIDE
     Indication: DRUG ABUSE
     Dosage: TOTAL
     Route: 048
  7. SEROQUEL [Suspect]
     Active Substance: QUETIAPINE FUMARATE
     Indication: DRUG ABUSE
     Dosage: TOTAL
     Route: 048
  8. LEVOTHYROXINE. [Suspect]
     Active Substance: LEVOTHYROXINE
     Indication: DRUG ABUSE
     Dosage: TOTAL
     Route: 048

REACTIONS (2)
  - Sopor [Recovering/Resolving]
  - Drug abuse [Recovering/Resolving]

NARRATIVE: CASE EVENT DATE: 20140506
